FAERS Safety Report 6588973-2 (Version None)
Quarter: 2010Q1

REPORT INFORMATION
  Report Type: 
  Country: None (occurrence: None)
  Receive Date: 20100218
  Receipt Date: 20100209
  Transmission Date: 20100710
  Serious: Yes (Death, Life-Threatening, Other)
  Sender: FDA-Public Use
  Company Number: JP-PFIZER INC-2008160814

PATIENT
  Age: 65 Year
  Sex: Male
  Weight: 54.1 kg

DRUGS (4)
  1. SUNITINIB MALATE [Suspect]
     Indication: GASTROINTESTINAL STROMAL TUMOUR
     Dosage: 50 MG, 1X/DAY
     Route: 048
     Dates: start: 20080815, end: 20090707
  2. LASIX [Concomitant]
     Dosage: UNK
     Route: 048
  3. TAKEPRON [Concomitant]
     Dosage: UNK
     Route: 048
  4. METHYCOBAL [Concomitant]
     Dosage: UNK
     Route: 048
     Dates: start: 20080901

REACTIONS (10)
  - BLOOD CREATINE PHOSPHOKINASE INCREASED [None]
  - BLOOD CREATININE INCREASED [None]
  - DISEASE PROGRESSION [None]
  - DISSEMINATED INTRAVASCULAR COAGULATION [None]
  - GASTRIC PERFORATION [None]
  - GASTROINTESTINAL STROMAL TUMOUR [None]
  - GLOMERULAR FILTRATION RATE DECREASED [None]
  - PLATELET COUNT DECREASED [None]
  - RHABDOMYOLYSIS [None]
  - TUMOUR LYSIS SYNDROME [None]
